FAERS Safety Report 4750638-7 (Version None)
Quarter: 2005Q3

REPORT INFORMATION
  Report Type: 
  Country: None (occurrence: None)
  Receive Date: 20050818
  Receipt Date: 20050810
  Transmission Date: 20060218
  Serious: Yes (Hospitalization)
  Sender: FDA-Public Use
  Company Number: 2005-131394-NL

PATIENT
  Age: 60 Year
  Sex: Female

DRUGS (2)
  1. MIRTAZAPINE [Suspect]
     Indication: DEPRESSION
     Dosage: 45 MG QD
     Route: 048
     Dates: start: 20020123, end: 20050729
  2. LEVOTHYROXINE [Concomitant]

REACTIONS (1)
  - APLASTIC ANAEMIA [None]
